FAERS Safety Report 4595444-1 (Version None)
Quarter: 2005Q1

REPORT INFORMATION
  Report Type: 
  Country: None (occurrence: None)
  Receive Date: 20050224
  Receipt Date: 20050209
  Transmission Date: 20050727
  Serious: Yes (Death, Hospitalization, Other)
  Sender: FDA-Public Use
  Company Number: US_020988011

PATIENT
  Age: 62 Year
  Sex: Male

DRUGS (9)
  1. ZYPREXA [Suspect]
     Indication: ANXIETY
     Dosage: 750 MG OTHER
  2. ZYPREXA [Suspect]
     Indication: BIPOLAR DISORDER
     Dosage: 750 MG OTHER
  3. ZYPREXA [Suspect]
     Indication: DEPRESSION
     Dosage: 750 MG OTHER
  4. LITHIUM [Concomitant]
  5. TERAZOSIN HCL [Concomitant]
  6. RABEPRAZOLE SODIUM [Concomitant]
  7. METHOCARBAMOL [Concomitant]
  8. THIAMINE [Concomitant]
  9. IBUPROFEN [Concomitant]

REACTIONS (44)
  - ANOXIA [None]
  - ARRHYTHMIA [None]
  - ATRIAL FIBRILLATION [None]
  - BLOOD CREATININE INCREASED [None]
  - BLOOD LACTIC ACID INCREASED [None]
  - CARDIAC ARREST [None]
  - CARDIAC FAILURE CONGESTIVE [None]
  - CEREBRAL ATROPHY [None]
  - CHOREOATHETOSIS [None]
  - COMA [None]
  - CONFUSIONAL STATE [None]
  - CONTUSION [None]
  - COORDINATION ABNORMAL [None]
  - DECEREBRATION [None]
  - DELIRIUM [None]
  - DYSARTHRIA [None]
  - DYSTONIA [None]
  - EXTENSOR PLANTAR RESPONSE [None]
  - GAIT DISTURBANCE [None]
  - GRIMACING [None]
  - HAEMORRHAGE SUBCUTANEOUS [None]
  - HEAD BANGING [None]
  - HYPERREFLEXIA [None]
  - HYPOTONIA [None]
  - LETHARGY [None]
  - METABOLIC ACIDOSIS [None]
  - MYOCLONUS [None]
  - NYSTAGMUS [None]
  - OVERDOSE [None]
  - PATHOGEN RESISTANCE [None]
  - PNEUMONIA [None]
  - PRESCRIBED OVERDOSE [None]
  - RESTLESSNESS [None]
  - RHABDOMYOLYSIS [None]
  - SALIVA ALTERED [None]
  - SEPSIS [None]
  - SKIN INFECTION [None]
  - SOMNOLENCE [None]
  - SPEECH DISORDER [None]
  - STATUS EPILEPTICUS [None]
  - SUICIDE ATTEMPT [None]
  - VENTRICULAR TACHYCARDIA [None]
  - WHITE BLOOD CELL COUNT INCREASED [None]
  - WOUND INFECTION [None]
